FAERS Safety Report 9899812 (Version 2)
Quarter: 2014Q1

REPORT INFORMATION
  Report Type: Spontaneous
  Country: US (occurrence: US)
  Receive Date: 20140214
  Receipt Date: 20140214
  Transmission Date: 20141002
  Serious: No
  Sender: FDA-Public Use
  Company Number: US-GILEAD-2011-0042435

PATIENT
  Sex: Female

DRUGS (1)
  1. LETAIRIS [Suspect]
     Indication: PRODUCT USED FOR UNKNOWN INDICATION
     Route: 048
     Dates: start: 20110727, end: 20110801

REACTIONS (9)
  - Fatigue [Unknown]
  - Insomnia [Unknown]
  - Visual impairment [Unknown]
  - Dry mouth [Unknown]
  - Dysphonia [Unknown]
  - Nasal congestion [Unknown]
  - Headache [Unknown]
  - Local swelling [Unknown]
  - Eye oedema [Unknown]
